FAERS Safety Report 9638069 (Version 1)
Quarter: 2013Q4

REPORT INFORMATION
  Report Type: Spontaneous
  Country: US (occurrence: None)
  Receive Date: 20131021
  Receipt Date: 20131021
  Transmission Date: 20140711
  Serious: Yes (Other)
  Sender: FDA-Public Use
  Company Number: None

PATIENT
  Age: 57 Year
  Sex: Female
  Weight: 61.24 kg

DRUGS (1)
  1. TYSABRI [Suspect]
     Indication: MULTIPLE SCLEROSIS
     Dosage: 1 VIAL, IV
     Route: 042
     Dates: start: 20131017, end: 20131017

REACTIONS (4)
  - Muscle spasms [None]
  - Nausea [None]
  - Urticaria [None]
  - Vomiting [None]
